FAERS Safety Report 5385192-2 (Version None)
Quarter: 2007Q3

REPORT INFORMATION
  Report Type: 
  Country: None (occurrence: None)
  Receive Date: 20070712
  Receipt Date: 20070702
  Transmission Date: 20080115
  Serious: Yes (Other)
  Sender: FDA-Public Use
  Company Number: US-JNJFOC-20070700802

PATIENT
  Sex: Female

DRUGS (4)
  1. DURAGESIC-100 [Suspect]
     Indication: PAIN
     Route: 062
  2. PROPOXYPHONE [Concomitant]
     Indication: PAIN
     Route: 048
  3. INDOCIN [Concomitant]
     Indication: JOINT SWELLING
     Route: 048
  4. TYLENOL EXTRA STRENGTH [Concomitant]
     Indication: PAIN
     Route: 048

REACTIONS (5)
  - ARTHROPATHY [None]
  - DEPRESSION [None]
  - DRUG ADMINISTERED AT INAPPROPRIATE SITE [None]
  - DRUG INEFFECTIVE [None]
  - PHARMACEUTICAL PRODUCT COMPLAINT [None]
